FAERS Safety Report 20658778 (Version 1)
Quarter: 2022Q1

REPORT INFORMATION
  Report Type: Report from Study
  Country: US (occurrence: US)
  Receive Date: 20220331
  Receipt Date: 20220331
  Transmission Date: 20220423
  Serious: Yes (Other)
  Sender: FDA-Public Use
  Company Number: US-OTSUKA-2022_017175

PATIENT
  Age: 0 Year
  Sex: Female
  Weight: 4 kg

DRUGS (5)
  1. ARIPIPRAZOLE [Suspect]
     Active Substance: ARIPIPRAZOLE
     Indication: Bipolar disorder
     Dosage: 1 MG, BEFORE LMP- 26 WEEKS PREGNANT
     Route: 064
  2. LAMOTRIGINE [Concomitant]
     Active Substance: LAMOTRIGINE
     Indication: Bipolar disorder
     Dosage: BEFORE LMP- DELIVERY
     Route: 064
  3. DESVENLAFAXINE [Concomitant]
     Active Substance: DESVENLAFAXINE
     Indication: Bipolar disorder
     Dosage: BEFORE LMP- DELIVERY
     Route: 064
  4. RISPERIDONE [Concomitant]
     Active Substance: RISPERIDONE
     Indication: Bipolar disorder
     Dosage: 0.5 MG, BEFORE LMP- 7 WEEKS PREGNANT
     Route: 064
  5. BUPROPION [Concomitant]
     Active Substance: BUPROPION
     Indication: Product used for unknown indication
     Dosage: 26 WEEKS PREGNANT - DELIVERY
     Route: 064

REACTIONS (1)
  - Respiratory disorder neonatal [Unknown]

NARRATIVE: CASE EVENT DATE: 20210224
